FAERS Safety Report 4766626-0 (Version None)
Quarter: 2005Q3

REPORT INFORMATION
  Report Type: 
  Country: None (occurrence: None)
  Receive Date: 20050908
  Receipt Date: 20050826
  Transmission Date: 20060218
  Serious: Yes (Death, Hospitalization, Other)
  Sender: FDA-Public Use
  Company Number: 2005110795

PATIENT
  Age: 35 Year
  Sex: Female

DRUGS (26)
  1. GEODON [Suspect]
     Indication: BIPOLAR DISORDER
     Dosage: 80 MG (40 MG, 2 IN 1 D), ORAL
     Route: 048
  2. ADVAIR DISKUS 100/50 [Concomitant]
  3. XOPENEX [Concomitant]
  4. ALBUTEROL [Concomitant]
  5. ACETYLSALICYLIC ACID SRT [Concomitant]
  6. PLAVIX [Concomitant]
  7. CLONAZEPAM [Concomitant]
  8. EFFEXOR XR [Concomitant]
  9. FLUOXETINE [Concomitant]
  10. NEURONTIN [Concomitant]
  11. LITHIUM CARBONATE [Concomitant]
  12. TRAZODONE HCL [Concomitant]
  13. DICLOFENAC SODIUM [Concomitant]
  14. FENTANYL [Concomitant]
  15. DITROPAN XL [Concomitant]
  16. CRANBERRY (VACCINIUJM MACROCARPON) [Concomitant]
  17. DOCUSATE (DOCUSATE) [Concomitant]
  18. REGLAN (METROCLOPRAMIDE) [Concomitant]
  19. PREVAICD (LANSOPRAZOLE) [Concomitant]
  20. FLONASE [Concomitant]
  21. LORATADINE [Concomitant]
  22. LASIX [Concomitant]
  23. LEVOTHROID [Concomitant]
  24. LIPITOR [Concomitant]
  25. GLUCOPHAGE [Concomitant]
  26. POTASSIUM CHLORIDE [Concomitant]

REACTIONS (23)
  - ANXIETY [None]
  - BACTERIAL INFECTION [None]
  - BLOOD URINE [None]
  - CARDIAC FAILURE CONGESTIVE [None]
  - CARDIAC MURMUR [None]
  - CATHETER RELATED INFECTION [None]
  - CYSTITIS [None]
  - DEHYDRATION [None]
  - DEPRESSED LEVEL OF CONSCIOUSNESS [None]
  - DEPRESSED MOOD [None]
  - DIARRHOEA [None]
  - DISEASE RECURRENCE [None]
  - GENERAL PHYSICAL HEALTH DETERIORATION [None]
  - HAEMOGLOBIN DECREASED [None]
  - MUCOSAL DRYNESS [None]
  - NEUROLEPTIC MALIGNANT SYNDROME [None]
  - OBESITY [None]
  - PLATELET COUNT INCREASED [None]
  - PROTEUS INFECTION [None]
  - RENAL IMPAIRMENT [None]
  - URINE KETONE BODY [None]
  - UROSEPSIS [None]
  - WEIGHT DECREASED [None]
